FAERS Safety Report 8773443 (Version 3)
Quarter: 2013Q4

REPORT INFORMATION
  Report Type: Spontaneous
  Country: US (occurrence: US)
  Receive Date: 20120907
  Receipt Date: 20131001
  Transmission Date: 20140711
  Serious: Yes (Hospitalization)
  Sender: FDA-Public Use
  Company Number: US-BAYER-2012-092640

PATIENT
  Age: 26 Year
  Sex: Female
  Weight: 104.31 kg

DRUGS (6)
  1. SAFYRAL [Suspect]
     Indication: CONTRACEPTION
     Dosage: UNK
     Dates: start: 20110512, end: 20110724
  2. NAPROXEN [Concomitant]
     Dosage: UNK
     Dates: start: 2011, end: 2012
  3. VICODIN [Concomitant]
     Dosage: UNK
     Dates: start: 20110623
  4. ROBAXIN [MACROGOL,METHOCARBAMOL] [Concomitant]
     Dosage: UNK
     Dates: start: 20110724
  5. MOBIC [Concomitant]
     Dosage: UNK
     Dates: start: 20110724
  6. ROCEPHIN [Concomitant]

REACTIONS (6)
  - Pulmonary embolism [None]
  - Injury [None]
  - Pain [None]
  - Emotional distress [None]
  - Anxiety [None]
  - Psychological trauma [None]
